FAERS Safety Report 12581508 (Version 1)
Quarter: 2016Q3

REPORT INFORMATION
  Report Type: Spontaneous
  Country: US (occurrence: US)
  Receive Date: 20160721
  Receipt Date: 20160721
  Transmission Date: 20161109
  Serious: No
  Sender: FDA-Public Use
  Company Number: US-BRISTOL-MYERS SQUIBB COMPANY-BMS-2016-058964

PATIENT
  Age: 7 Decade
  Sex: Female

DRUGS (1)
  1. OPDIVO [Suspect]
     Active Substance: NIVOLUMAB
     Indication: PRODUCT USED FOR UNKNOWN INDICATION
     Dosage: 260 MG, UNK
     Route: 042

REACTIONS (4)
  - Heart rate abnormal [Unknown]
  - Nasopharyngitis [Unknown]
  - Anxiety [Unknown]
  - Tremor [Unknown]
